FAERS Safety Report 20443314 (Version 1)
Quarter: 2022Q1

REPORT INFORMATION
  Report Type: Spontaneous
  Country: US (occurrence: None)
  Receive Date: 20220207
  Receipt Date: 20220207
  Transmission Date: 20220423
  Serious: Yes (Other)
  Sender: FDA-Public Use
  Company Number: None

PATIENT
  Age: 74 Year
  Sex: Male

DRUGS (1)
  1. ABIRATERONE [Suspect]
     Active Substance: ABIRATERONE
     Indication: Prostate cancer
     Dosage: 1000 MG DAILY ORAL?
     Route: 048
     Dates: start: 201906

REACTIONS (3)
  - Prostatic specific antigen increased [None]
  - Therapy non-responder [None]
  - Neoplasm recurrence [None]

NARRATIVE: CASE EVENT DATE: 20211123
